APPROVED DRUG PRODUCT: ADHANSIA XR
Active Ingredient: METHYLPHENIDATE HYDROCHLORIDE
Strength: 35MG
Dosage Form/Route: CAPSULE, EXTENDED RELEASE;ORAL
Application: N212038 | Product #002
Applicant: PURDUE PHARMA LP
Approved: Feb 27, 2019 | RLD: Yes | RS: No | Type: DISCN

PATENTS:
Patent 10111839 | Expires: Oct 30, 2035
Patent 10512613 | Expires: Oct 30, 2035
Patent 10449159 | Expires: Oct 30, 2035
Patent 10500162 | Expires: Oct 30, 2035
Patent 10568841 | Expires: Oct 30, 2035
Patent 10722473 | Expires: Nov 19, 2038
Patent 10292939 | Expires: Oct 30, 2035
Patent 10688060 | Expires: Oct 30, 2035
Patent 10507186 | Expires: Oct 30, 2035
Patent 10292938 | Expires: Oct 30, 2035
Patent 9974752 | Expires: Oct 30, 2035
Patent 10512612 | Expires: Oct 30, 2035